FAERS Safety Report 5287688-0 (Version None)
Quarter: 2007Q1

REPORT INFORMATION
  Report Type: 
  Country: None (occurrence: None)
  Receive Date: 20070116
  Receipt Date: 20061206
  Transmission Date: 20070707
  Serious: No
  Sender: FDA-Public Use
  Company Number: 2005SP000652

PATIENT
  Age: 42 Year
  Sex: Female
  Weight: 58.9676 kg

DRUGS (7)
  1. LUNESTA [Suspect]
     Indication: INSOMNIA
     Dosage: SEE IMAGE
     Route: 048
     Dates: start: 20050414, end: 20050101
  2. LUNESTA [Suspect]
     Indication: INSOMNIA
     Dosage: SEE IMAGE
     Route: 048
     Dates: start: 20050101
  3. CALCIUM [Concomitant]
  4. MAGNESIUM [Concomitant]
  5. ATIVAN [Concomitant]
  6. TENORMIN [Concomitant]
  7. PAXIL [Suspect]
     Dosage: ORAL
     Route: 048

REACTIONS (3)
  - DYSGEUSIA [None]
  - INITIAL INSOMNIA [None]
  - NIGHTMARE [None]
